FAERS Safety Report 7246413-4 (Version None)
Quarter: 2011Q1

REPORT INFORMATION
  Report Type: 
  Country: None (occurrence: None)
  Receive Date: 20110126
  Receipt Date: 20101124
  Transmission Date: 20110831
  Serious: No
  Sender: FDA-Public Use
  Company Number: US-BAUSCH-2010BL006714

PATIENT
  Age: 88 Year
  Sex: Female

DRUGS (1)
  1. ZYLET [Suspect]
     Indication: BLEPHARITIS
     Route: 047
     Dates: start: 20101001, end: 20101101

REACTIONS (1)
  - RASH PRURITIC [None]
